FAERS Safety Report 7694410-7 (Version None)
Quarter: 2011Q3

REPORT INFORMATION
  Report Type: 
  Country: None (occurrence: None)
  Receive Date: 20110816
  Receipt Date: 20110803
  Transmission Date: 20111222
  Serious: Yes (Other)
  Sender: FDA-Public Use
  Company Number: 2011SP037359

PATIENT
  Age: 49 Year
  Sex: Male

DRUGS (1)
  1. PEGINTERFERON ALFA-2B [Suspect]
     Indication: HEPATITIS C
     Dosage: SC
     Route: 058
     Dates: start: 20110101

REACTIONS (6)
  - RENAL DISORDER [None]
  - PAIN [None]
  - SPEECH DISORDER [None]
  - PYREXIA [None]
  - DELIRIUM [None]
  - EMOTIONAL DISORDER [None]
